FAERS Safety Report 21059040 (Version 1)
Quarter: 2022Q3

REPORT INFORMATION
  Report Type: Spontaneous
  Country: US (occurrence: US)
  Receive Date: 20220708
  Receipt Date: 20220708
  Transmission Date: 20221027
  Serious: Yes (Other)
  Sender: FDA-Public Use
  Company Number: US-BRISTOL-MYERS SQUIBB COMPANY-2022-067106

PATIENT
  Age: 73 Year
  Sex: Male

DRUGS (6)
  1. REVLIMID [Suspect]
     Active Substance: LENALIDOMIDE
     Indication: Plasma cell myeloma
     Dosage: 15 DAYS OUT OF 28 DAYS
     Route: 048
     Dates: start: 20220311
  2. ASPIRIN SODIUM [Concomitant]
     Active Substance: ASPIRIN SODIUM
  3. DARZALEX SC [Concomitant]
     Dosage: 100 MG/5M
  4. KYPROLIS [Concomitant]
     Active Substance: CARFILZOMIB
  5. SOTALOL [Concomitant]
     Active Substance: SOTALOL
  6. VELCADE [Concomitant]
     Active Substance: BORTEZOMIB

REACTIONS (4)
  - Plasma cell myeloma refractory [Unknown]
  - Protein total increased [Unknown]
  - Full blood count decreased [Unknown]
  - Off label use [Unknown]

NARRATIVE: CASE EVENT DATE: 20220301
